FAERS Safety Report 8234638-0 (Version None)
Quarter: 2012Q1

REPORT INFORMATION
  Report Type: 
  Country: None (occurrence: None)
  Receive Date: 20120326
  Receipt Date: 20120315
  Transmission Date: 20120608
  Serious: Yes (Hospitalization, Other)
  Sender: FDA-Public Use
  Company Number: MX-ELI_LILLY_AND_COMPANY-MX201009002224

PATIENT
  Age: 60 Year
  Sex: Female
  Weight: 74 kg

DRUGS (6)
  1. FORTEO [Suspect]
     Indication: SPINAL DISORDER
     Dosage: 20 UG, QD
     Route: 058
     Dates: start: 20080101
  2. OMEPRAZOLE [Concomitant]
     Indication: GASTRIC DISORDER
     Dosage: UNK
  3. FORTEO [Suspect]
     Dosage: 20 UG, QD
     Route: 058
     Dates: start: 20110301
  4. FORTEO [Suspect]
     Dosage: 20 UG, QD
     Route: 058
  5. MINOCIN [Concomitant]
     Dosage: UNK
  6. TRAMADOL HCL [Concomitant]
     Indication: PAIN
     Dosage: UNK

REACTIONS (6)
  - SPINAL OSTEOARTHRITIS [None]
  - INTENTIONAL DRUG MISUSE [None]
  - CONDITION AGGRAVATED [None]
  - OFF LABEL USE [None]
  - OSTEOMYELITIS [None]
  - NEOPLASM MALIGNANT [None]
